FAERS Safety Report 7277446-X (Version None)
Quarter: 2011Q1

REPORT INFORMATION
  Report Type: 
  Country: None (occurrence: None)
  Receive Date: 20110207
  Receipt Date: 20110201
  Transmission Date: 20110831
  Serious: Yes (Hospitalization)
  Sender: FDA-Public Use
  Company Number: US-BRISTOL-MYERS SQUIBB COMPANY-15522196

PATIENT
  Age: 6 Decade
  Sex: Female

DRUGS (2)
  1. SEROTONIN REUPTAKE INHIBITORS [Suspect]
  2. ABILIFY [Suspect]

REACTIONS (1)
  - SEROTONIN SYNDROME [None]
